FAERS Safety Report 8793393 (Version 1)
Quarter: 2012Q4

REPORT INFORMATION
  Report Type: 
  Country: US (occurrence: US)
  Receive Date: 20120918
  Receipt Date: 20120918
  Transmission Date: 20130627
  Serious: No
  Sender: FDA-Public Use
  Company Number: US-ASTRAZENECA-2012SE70131

PATIENT
  Age: 69 Year
  Sex: Female

DRUGS (25)
  1. ATENOLOL [Suspect]
     Route: 048
  2. LISINOPRIL [Suspect]
     Route: 048
  3. OMEPRAZOLE [Suspect]
     Route: 048
  4. CRESTOR [Suspect]
     Route: 048
  5. AMLODIPINE BESYLATE [Concomitant]
     Route: 048
  6. HYDROCHLOROTHIAZIDE [Concomitant]
     Route: 048
  7. COZAAR [Concomitant]
     Route: 048
  8. RANITIDINE HCL [Concomitant]
     Route: 048
  9. DOCUSATE SODIUM [Concomitant]
     Route: 048
  10. BUFFERIN [Concomitant]
     Route: 048
  11. FENOFIBRATE MICRONIZED [Concomitant]
     Route: 048
  12. GLUCOPHAGE XR [Concomitant]
     Route: 048
  13. CALTRATE WITH VITAMIN D [Concomitant]
     Dosage: 600-400 MG-UNIT, 1 PO QD 2 HOURS AWAY OTHER MEDS
     Route: 048
  14. CENTRUM SILVER [Concomitant]
     Route: 048
  15. MUCINEX DM [Concomitant]
     Dosage: 60-1200 MG XR 12H-TAB, 1 PO BID PRN
  16. LEVOTHYROXINE SODIUM [Concomitant]
     Route: 048
  17. FLU VAX [Concomitant]
     Dosage: 0.5 CC
     Dates: start: 20031216
  18. FLU VAX [Concomitant]
     Dosage: 0.5 ML
     Dates: start: 20060921
  19. FLU VAX [Concomitant]
     Dosage: 0.5 ML
     Dates: start: 20071015
  20. FLUVIRIN [Concomitant]
     Dates: start: 20081211
  21. FLUZONE [Concomitant]
     Dates: start: 20100914
  22. FLUZONE HD [Concomitant]
     Dates: start: 20110901
  23. TD BOOSTER [Concomitant]
     Dates: start: 20080703
  24. PNEUMOVAX [Concomitant]
     Dates: start: 20080703
  25. TDAP [Concomitant]
     Dates: start: 20110901

REACTIONS (15)
  - Back pain [Unknown]
  - Hypertension [Unknown]
  - Hypothyroidism [Unknown]
  - Peripheral vascular disorder [Unknown]
  - Vitamin D deficiency [Unknown]
  - Type 2 diabetes mellitus [Unknown]
  - Osteopenia [Unknown]
  - Metabolic syndrome [Unknown]
  - Hyperlipidaemia [Unknown]
  - Asthma [Unknown]
  - Gastrooesophageal reflux disease [Unknown]
  - Hyponatraemia [Unknown]
  - Arthralgia [Unknown]
  - Drug hypersensitivity [Unknown]
  - Depression [Unknown]
